FAERS Safety Report 13522054 (Version 1)
Quarter: 2017Q2

REPORT INFORMATION
  Report Type: Spontaneous
  Country: FR (occurrence: FR)
  Receive Date: 20170508
  Receipt Date: 20170508
  Transmission Date: 20170830
  Serious: Yes (Hospitalization)
  Sender: FDA-Public Use
  Company Number: FR-BAYER-2017-081949

PATIENT
  Age: 67 Year
  Sex: Female

DRUGS (12)
  1. LEVOTHYROX [Concomitant]
     Active Substance: LEVOTHYROXINE
     Indication: HYPOTHYROIDISM
     Dosage: 1 DF, QD
     Route: 048
  2. MODOPAR [Concomitant]
     Active Substance: BENSERAZIDE HYDROCHLORIDE\LEVODOPA
     Indication: PARKINSON^S DISEASE
     Dosage: 4 DF, QID
     Route: 048
  3. AERIUS [Concomitant]
     Active Substance: DESLORATADINE
     Indication: PRODUCT USED FOR UNKNOWN INDICATION
     Dosage: 1 DF, QD
     Route: 048
  4. HEPARIN [Concomitant]
     Active Substance: HEPARIN SODIUM
     Dosage: UNK
  5. ATORVASTATIN [Suspect]
     Active Substance: ATORVASTATIN
     Indication: PRODUCT USED FOR UNKNOWN INDICATION
     Dosage: 10 MG, QD
     Route: 048
  6. PANTOPRAZOLE [Concomitant]
     Active Substance: PANTOPRAZOLE
     Indication: PRODUCT USED FOR UNKNOWN INDICATION
     Dosage: 20 MG, QD
     Route: 048
  7. MACROGOL 4000 [Concomitant]
     Active Substance: POLYETHYLENE GLYCOL 4000
     Indication: PRODUCT USED FOR UNKNOWN INDICATION
     Dosage: 2 DF, QD
     Route: 048
  8. ASPIRINE PROTECT 300 MG [Suspect]
     Active Substance: ASPIRIN
     Indication: TRANSIENT ISCHAEMIC ATTACK
     Dosage: 1 DF, QD
     Route: 048
  9. PREVISCAN [Suspect]
     Active Substance: FLUINDIONE
     Indication: ARRHYTHMIA
     Dosage: UNK
     Route: 048
     Dates: end: 20170323
  10. COVERSYL [Concomitant]
     Active Substance: PERINDOPRIL
     Indication: HYPERTENSION
     Dosage: 1 DF, QD
  11. FLECAINE [Concomitant]
     Active Substance: FLECAINIDE
     Indication: ARRHYTHMIA
     Dosage: 1 DF, QD
  12. LODOZ [Concomitant]
     Active Substance: BISOPROLOL FUMARATE\HYDROCHLOROTHIAZIDE
     Indication: HYPERTENSION
     Dosage: 1 DF, QD
     Route: 048

REACTIONS (2)
  - Muscle haemorrhage [Not Recovered/Not Resolved]
  - Sciatica [Not Recovered/Not Resolved]

NARRATIVE: CASE EVENT DATE: 20170323
